FAERS Safety Report 4573154-4 (Version None)
Quarter: 2005Q1

REPORT INFORMATION
  Report Type: 
  Country: None (occurrence: None)
  Receive Date: 20050208
  Receipt Date: 20040721
  Transmission Date: 20050727
  Serious: No
  Sender: FDA-Public Use
  Company Number: US-GLAXOSMITHKLINE-A0519244A

PATIENT
  Age: 49 Year
  Sex: Male

DRUGS (3)
  1. PAXIL [Suspect]
     Dosage: 5MG PER DAY
     Route: 048
     Dates: start: 20040719
  2. KLONOPIN [Concomitant]
  3. MULTI-VITAMIN [Concomitant]

REACTIONS (2)
  - ANXIETY [None]
  - DEPRESSION [None]
